FAERS Safety Report 23577772 (Version 1)
Quarter: 2024Q1

REPORT INFORMATION
  Report Type: Other
  Country: US (occurrence: US)
  Receive Date: 20240228
  Receipt Date: 20240228
  Transmission Date: 20240410
  Serious: Yes (Other)
  Sender: FDA-Public Use
  Company Number: US-Techdow-2024Techdow000060

PATIENT

DRUGS (1)
  1. ENOXAPARIN SODIUM [Suspect]
     Active Substance: ENOXAPARIN SODIUM
     Indication: Anticoagulant therapy
     Dosage: 1MG/KG,EVERY 12 HOURS OR 1.5MG/KG,EVERY 24 HOURS

REACTIONS (1)
  - Deep vein thrombosis [Unknown]
